FAERS Safety Report 9235826 (Version 3)
Quarter: 2013Q4

REPORT INFORMATION
  Report Type: Spontaneous
  Country: JP (occurrence: JP)
  Receive Date: 20130417
  Receipt Date: 20131021
  Transmission Date: 20140711
  Serious: Yes (Death, Hospitalization)
  Sender: FDA-Public Use
  Company Number: PHHY2013JP036430

PATIENT
  Age: 55 Year
  Sex: Male

DRUGS (3)
  1. GLIVEC [Suspect]
     Indication: GASTROINTESTINAL STROMAL TUMOUR
     Dosage: 400 MG, PER DAY
     Route: 048
     Dates: start: 20070914, end: 20080124
  2. GLIVEC [Suspect]
     Dosage: UNK UKN, UNK
     Route: 048
     Dates: start: 20080513
  3. SUNITINIB [Concomitant]
     Dosage: UNK UKN, UNK

REACTIONS (13)
  - Gastrointestinal stromal tumour [Fatal]
  - Malignant neoplasm progression [Fatal]
  - Interstitial lung disease [Recovered/Resolved]
  - Dyspnoea exertional [Unknown]
  - Abdominal pain upper [Unknown]
  - Decreased appetite [Unknown]
  - Hepatic function abnormal [Unknown]
  - Ascites [Unknown]
  - Lymphadenopathy [Unknown]
  - Metastasis [Unknown]
  - Neoplasm recurrence [Unknown]
  - General physical health deterioration [Unknown]
  - Drug resistance [Unknown]
